FAERS Safety Report 24397977 (Version 1)
Quarter: 2024Q4

REPORT INFORMATION
  Report Type: Spontaneous
  Country: US (occurrence: US)
  Receive Date: 20241004
  Receipt Date: 20241004
  Transmission Date: 20250115
  Serious: Yes (Death, Life-Threatening, Other)
  Sender: PFIZER
  Company Number: US-PFIZER INC-PV202400128231

PATIENT
  Sex: Female

DRUGS (1)
  1. LABETALOL HYDROCHLORIDE [Suspect]
     Active Substance: LABETALOL HYDROCHLORIDE
     Dosage: UNK

REACTIONS (4)
  - Ischaemic stroke [Fatal]
  - Hypertension [Unknown]
  - Cerebrovascular accident [Unknown]
  - Drug screen false positive [Unknown]
